FAERS Safety Report 6298271-2 (Version None)
Quarter: 2009Q3

REPORT INFORMATION
  Report Type: 
  Country: None (occurrence: None)
  Receive Date: 20090805
  Receipt Date: 20090729
  Transmission Date: 20100115
  Serious: Yes (Other)
  Sender: FDA-Public Use
  Company Number: US-BAYER-200919112NA

PATIENT
  Age: 54 Year
  Sex: Female

DRUGS (2)
  1. ULTRAVIST 300 [Suspect]
     Indication: COMPUTERISED TOMOGRAM ABDOMEN
     Dosage: TOTAL DAILY DOSE: 120 ML  UNIT DOSE: 150 ML
     Route: 042
     Dates: start: 20081107, end: 20081107
  2. UNKNOWN CONTRAST [Concomitant]
     Route: 048
     Dates: start: 20081107, end: 20081107

REACTIONS (4)
  - DYSPNOEA [None]
  - ERYTHEMA [None]
  - PERIORBITAL OEDEMA [None]
  - THROAT TIGHTNESS [None]
